FAERS Safety Report 16238700 (Version 1)
Quarter: 2019Q2

REPORT INFORMATION
  Report Type: Report from Study
  Country: MY (occurrence: MY)
  Receive Date: 20190425
  Receipt Date: 20190425
  Transmission Date: 20190711
  Serious: Yes (Hospitalization)
  Sender: FDA-Public Use
  Company Number: MY-PFIZER INC-2019174128

PATIENT

DRUGS (6)
  1. RITUXIMAB. [Suspect]
     Active Substance: RITUXIMAB
     Indication: PRIMARY MEDIASTINAL LARGE B-CELL LYMPHOMA
     Dosage: ESCALATION DOSE OF LEVEL 3, REPRESENTING A 144% OF THE STARTING DOSE, CYCLIC (COMPLETED 8 CYCLES)
     Dates: end: 201802
  2. ETOPOSIDE. [Suspect]
     Active Substance: ETOPOSIDE
     Indication: PRIMARY MEDIASTINAL LARGE B-CELL LYMPHOMA
     Dosage: ESCALATION DOSE OF LEVEL 3, REPRESENTING A 144% OF THE STARTING DOSE, CYCLIC (COMPLETED 8 CYCLES)
     Dates: end: 201802
  3. VINCRISTINE SULFATE. [Suspect]
     Active Substance: VINCRISTINE SULFATE
     Indication: PRIMARY MEDIASTINAL LARGE B-CELL LYMPHOMA
     Dosage: ESCALATION DOSE OF LEVEL 3, REPRESENTING A 144% OF THE STARTING DOSE, CYCLIC (COMPLETED 8 CYCLES)
     Dates: end: 201802
  4. DOXORUBICIN HCL [Suspect]
     Active Substance: DOXORUBICIN HYDROCHLORIDE
     Indication: PRIMARY MEDIASTINAL LARGE B-CELL LYMPHOMA
     Dosage: 40 MG/M2, CYCLIC (COMPLETED 8 CYCLES)
     Dates: end: 201802
  5. CYCLOPHOSPHAMIDE. [Suspect]
     Active Substance: CYCLOPHOSPHAMIDE
     Indication: PRIMARY MEDIASTINAL LARGE B-CELL LYMPHOMA
     Dosage: ESCALATION DOSE OF LEVEL 3, REPRESENTING A 144% OF THE STARTING DOSE, CYCLIC (COMPLETED 8 CYCLES)
     Dates: end: 201802
  6. PREDNISONE. [Suspect]
     Active Substance: PREDNISONE
     Indication: PRIMARY MEDIASTINAL LARGE B-CELL LYMPHOMA
     Dosage: ESCALATION DOSE OF LEVEL 3, REPRESENTING A 144% OF THE STARTING DOSE, CYCLIC (COMPLETED 8 CYCLES)
     Dates: end: 201802

REACTIONS (1)
  - Device related infection [Unknown]
